FAERS Safety Report 4552184-2 (Version None)
Quarter: 2004Q4

REPORT INFORMATION
  Report Type: 
  Country: None (occurrence: None)
  Receive Date: 20041217
  Receipt Date: 20040826
  Transmission Date: 20050328
  Serious: No
  Sender: FDA-Public Use
  Company Number: 2004-BP-06176BP

PATIENT
  Age: 66 Year
  Sex: Female

DRUGS (3)
  1. SPIRIVA [Suspect]
     Indication: CHRONIC OBSTRUCTIVE AIRWAYS DISEASE
     Dosage: 18 MCG (18 MCG),IH
  2. XOPENEX [Concomitant]
  3. ACTOSE (LACTOSE) [Concomitant]

REACTIONS (1)
  - BLOOD GLUCOSE INCREASED [None]
